FAERS Safety Report 4301371-7 (Version None)
Quarter: 2004Q1

REPORT INFORMATION
  Report Type: 
  Country: None (occurrence: None)
  Receive Date: 20040223
  Receipt Date: 20030804
  Transmission Date: 20041129
  Serious: No
  Sender: FDA-Public Use
  Company Number: US-GLAXOSMITHKLINE-A0419501A

PATIENT
  Age: 71 Year
  Sex: Female

DRUGS (3)
  1. NAVELBINE [Suspect]
     Indication: NON-SMALL CELL LUNG CANCER
     Route: 042
     Dates: start: 20030724
  2. NEXIUM [Concomitant]
  3. PREMARIN [Concomitant]

REACTIONS (1)
  - ABDOMINAL PAIN UPPER [None]
